FAERS Safety Report 20392079 (Version 1)
Quarter: 2022Q1

REPORT INFORMATION
  Report Type: Spontaneous
  Country: US (occurrence: US)
  Receive Date: 20220128
  Receipt Date: 20220128
  Transmission Date: 20220423
  Serious: Yes (Other)
  Sender: FDA-Public Use
  Company Number: US-OTSUKA-2022_002668

PATIENT
  Age: 13 Year
  Sex: Female
  Weight: 40.5 kg

DRUGS (6)
  1. ABILIFY [Suspect]
     Active Substance: ARIPIPRAZOLE
     Indication: Product used for unknown indication
     Dosage: UNK
     Route: 065
  2. ZIPRASIDONE HYDROCHLORIDE [Suspect]
     Active Substance: ZIPRASIDONE HYDROCHLORIDE
     Indication: Obsessive-compulsive disorder
     Dosage: 20 MG, QD, DRL 60 CT
     Route: 065
     Dates: end: 20220107
  3. ZIPRASIDONE HYDROCHLORIDE [Suspect]
     Active Substance: ZIPRASIDONE HYDROCHLORIDE
     Indication: Behaviour disorder
     Dosage: 40 MG, QD, DRL 60 CT
     Route: 065
     Dates: end: 20220107
  4. ZIPRASIDONE HYDROCHLORIDE [Suspect]
     Active Substance: ZIPRASIDONE HYDROCHLORIDE
     Dosage: 20 MG, QD
     Route: 065
     Dates: start: 202108
  5. OXCARBAZEPINE [Suspect]
     Active Substance: OXCARBAZEPINE
     Indication: Product used for unknown indication
     Dosage: UNK
     Route: 065
  6. RISPERDAL [Suspect]
     Active Substance: RISPERIDONE
     Indication: Product used for unknown indication
     Dosage: UNK
     Route: 065

REACTIONS (12)
  - Hallucination [Unknown]
  - Tardive dyskinesia [Unknown]
  - Dyskinesia [Unknown]
  - Affective disorder [Unknown]
  - Mydriasis [Unknown]
  - Psychotic disorder [Unknown]
  - Visual impairment [Unknown]
  - Movement disorder [Unknown]
  - Decreased appetite [Unknown]
  - Fatigue [Unknown]
  - Off label use [Unknown]
  - Drug ineffective [Unknown]
